FAERS Safety Report 5748248-8 (Version None)
Quarter: 2008Q2

REPORT INFORMATION
  Report Type: 
  Country: None (occurrence: None)
  Receive Date: 20080523
  Receipt Date: 20080514
  Transmission Date: 20081010
  Serious: Yes (Disabling)
  Sender: FDA-Public Use
  Company Number: SE-PFIZER INC-2006077626

PATIENT
  Sex: Male

DRUGS (15)
  1. LYRICA [Suspect]
     Indication: NEURALGIA
     Dosage: DAILY DOSE:300MG
     Route: 048
     Dates: start: 20050614, end: 20060313
  2. COZAAR [Suspect]
     Route: 065
  3. ALLOPURINOL [Concomitant]
     Route: 065
  4. NITROMEX [Concomitant]
     Route: 065
  5. DIGOXIN [Concomitant]
     Route: 065
  6. WARFARIN SODIUM [Concomitant]
     Route: 048
  7. KALITABS [Concomitant]
     Route: 048
  8. PHENOXYMETHYLPENICILLIN [Concomitant]
     Route: 065
  9. TENORMIN [Concomitant]
     Route: 065
  10. FUROSEMIDE [Concomitant]
     Route: 065
  11. HERACILLIN [Concomitant]
     Route: 065
  12. BETOLVEX [Concomitant]
     Route: 065
  13. SORBANGIL [Concomitant]
     Route: 065
  14. SIMVASTATIN [Concomitant]
     Route: 065
  15. SPIRONOLACTONE [Concomitant]
     Route: 065

REACTIONS (1)
  - HEARING IMPAIRED [None]
